FAERS Safety Report 24210348 (Version 3)
Quarter: 2025Q2

REPORT INFORMATION
  Report Type: Spontaneous
  Country: US (occurrence: US)
  Receive Date: 20240814
  Receipt Date: 20250604
  Transmission Date: 20250717
  Serious: Yes (Other)
  Sender: ELI LILLY AND COMPANY
  Company Number: US-ELI_LILLY_AND_COMPANY-US202408002225

PATIENT
  Age: 54 Year
  Sex: Female

DRUGS (1)
  1. TALTZ [Suspect]
     Active Substance: IXEKIZUMAB
     Indication: Psoriatic arthropathy
     Route: 058

REACTIONS (7)
  - Fungal infection [Unknown]
  - Pulmonary mass [Unknown]
  - Pulmonary necrosis [Unknown]
  - Thyroid cancer [Unknown]
  - Glycosylated haemoglobin increased [Unknown]
  - Overdose [Unknown]
  - Inappropriate schedule of product administration [Unknown]
